FAERS Safety Report 6174090-2 (Version None)
Quarter: 2009Q2

REPORT INFORMATION
  Report Type: 
  Country: None (occurrence: None)
  Receive Date: 20090430
  Receipt Date: 20090421
  Transmission Date: 20091009
  Serious: Yes (Other)
  Sender: FDA-Public Use
  Company Number: PHHY2009AT14125

PATIENT
  Age: 60 Year
  Sex: Male

DRUGS (5)
  1. STALEVO 100 [Suspect]
     Indication: PARKINSON'S DISEASE
     Dosage: 5 TIMES (500 MG) A DAY
  2. REQUIP [Interacting]
     Dosage: UNK
  3. AZILECT [Concomitant]
  4. PK-MERZ [Concomitant]
  5. SINEMET [Concomitant]

REACTIONS (5)
  - BLOOD CREATININE INCREASED [None]
  - COLITIS [None]
  - DIARRHOEA [None]
  - DRUG INTERACTION [None]
  - RENAL FAILURE [None]
